FAERS Safety Report 24177962 (Version 1)
Quarter: 2024Q3

REPORT INFORMATION
  Report Type: Other
  Country: CN (occurrence: CN)
  Receive Date: 20240806
  Receipt Date: 20240806
  Transmission Date: 20241017
  Serious: Yes (Hospitalization, Other)
  Sender: DEXCEL
  Company Number: CN-DEXPHARM-2024-2477

PATIENT
  Age: 22 Year
  Sex: Male
  Weight: 90 kg

DRUGS (2)
  1. IBUPROFEN [Interacting]
     Active Substance: IBUPROFEN
     Indication: Pyrexia
     Dosage: FOR A WEEK
  2. DICLOFENAC [Interacting]
     Active Substance: DICLOFENAC
     Indication: Pyrexia
     Dosage: ENTERIC-COATED TABLETS. FOR ONE WEEK.

REACTIONS (18)
  - Purpura fulminans [Recovered/Resolved]
  - Cellulitis [Recovered/Resolved]
  - Sepsis [Recovered/Resolved]
  - Disseminated intravascular coagulation [Recovered/Resolved]
  - Multiple organ dysfunction syndrome [Recovered/Resolved]
  - Gastrointestinal haemorrhage [Recovered/Resolved]
  - Acute respiratory distress syndrome [Recovered/Resolved]
  - Pulmonary embolism [Recovered/Resolved]
  - Cerebral infarction [Recovered/Resolved]
  - Hepatic vein thrombosis [Recovered/Resolved]
  - Portal vein thrombosis [Recovered/Resolved]
  - Splenic vein thrombosis [Recovered/Resolved]
  - Mesenteric vein thrombosis [Recovered/Resolved]
  - Deep vein thrombosis [Recovered/Resolved]
  - Pneumonia [Recovered/Resolved]
  - Candida infection [Recovered/Resolved]
  - Liver injury [Recovered/Resolved]
  - Drug interaction [Recovered/Resolved]
